FAERS Safety Report 9382620 (Version 1)
Quarter: 2013Q3

REPORT INFORMATION
  Report Type: Spontaneous
  Country: US (occurrence: US)
  Receive Date: 20130703
  Receipt Date: 20130703
  Transmission Date: 20140515
  Serious: No
  Sender: FDA-Public Use
  Company Number: US-UPSHER-SMITH LABORATORIES, INC.-13000108

PATIENT
  Age: 40 Year
  Sex: Female

DRUGS (3)
  1. DIVIGEL [Suspect]
     Indication: OESTROGEN REPLACEMENT THERAPY
     Dosage: 1.0 MG, QD
     Route: 061
     Dates: start: 201301, end: 20130110
  2. PROGESTIN [Concomitant]
     Dosage: UNK
  3. ALBUTEROL                          /00139501/ [Concomitant]
     Dosage: UNK

REACTIONS (2)
  - Asthma [Recovered/Resolved]
  - Seborrhoea [Recovering/Resolving]
